FAERS Safety Report 6329171-7 (Version None)
Quarter: 2009Q3

REPORT INFORMATION
  Report Type: 
  Country: None (occurrence: None)
  Receive Date: 20090826
  Receipt Date: 20080702
  Transmission Date: 20100115
  Serious: No
  Sender: FDA-Public Use
  Company Number: US-ASTRAZENECA-2007UW24946

PATIENT
  Age: 66 Year
  Sex: Female
  Weight: 99.3 kg

DRUGS (7)
  1. IRESSA [Suspect]
     Indication: LUNG NEOPLASM MALIGNANT
     Route: 048
     Dates: start: 20040101
  2. METOPROLOL TARTRATE [Concomitant]
  3. WATER PILL [Concomitant]
  4. DETROL [Concomitant]
  5. LIPITOR [Concomitant]
  6. CALCIUM [Concomitant]
  7. COUMADIN [Concomitant]

REACTIONS (6)
  - ACNE [None]
  - DRY SKIN [None]
  - JOINT SWELLING [None]
  - NAIL INFECTION [None]
  - OEDEMA PERIPHERAL [None]
  - PAIN IN EXTREMITY [None]
